FAERS Safety Report 20937096 (Version 1)
Quarter: 2022Q2

REPORT INFORMATION
  Report Type: Spontaneous
  Country: US (occurrence: None)
  Receive Date: 20220609
  Receipt Date: 20220609
  Transmission Date: 20220720
  Serious: No
  Sender: FDA-Public Use
  Company Number: US-ROCHE-2912798

PATIENT
  Age: 86 Year
  Sex: Female
  Weight: 57.658 kg

DRUGS (3)
  1. ACTEMRA [Suspect]
     Active Substance: TOCILIZUMAB
     Indication: Giant cell arteritis
     Dosage: WEEKLY
     Route: 058
     Dates: start: 202105
  2. ACTEMRA [Suspect]
     Active Substance: TOCILIZUMAB
  3. LUCENTIS [Suspect]
     Active Substance: RANIBIZUMAB
     Indication: Macular degeneration
     Dosage: EVERY 7 WEEKS LEFT EYE
     Route: 065
     Dates: start: 2019

REACTIONS (9)
  - Device defective [Unknown]
  - Needle issue [Unknown]
  - Device malfunction [Unknown]
  - Syringe issue [Unknown]
  - Product dose omission issue [Unknown]
  - Emotional distress [Unknown]
  - Fatigue [Unknown]
  - Insomnia [Unknown]
  - Fatigue [Unknown]

NARRATIVE: CASE EVENT DATE: 20210722
